FAERS Safety Report 5369843-4 (Version None)
Quarter: 2007Q2

REPORT INFORMATION
  Report Type: 
  Country: None (occurrence: None)
  Receive Date: 20070621
  Receipt Date: 20070605
  Transmission Date: 20071010
  Serious: Yes (Hospitalization, Other)
  Sender: FDA-Public Use
  Company Number: SPV1-2007-03392

PATIENT
  Age: 46 Year
  Sex: Male

DRUGS (7)
  1. CARBAMAZEPINE  (443) [Suspect]
     Indication: AGITATION
     Dosage: 600 MG, 1X/DAY:QD
  2. LITHIUM CARBONATE [Concomitant]
  3. PROMETHAZINE HCL [Concomitant]
  4. FLUNITRAZEPAM                    (FLUNITRAZEPAM) [Concomitant]
  5. BULOTIZOLAM [Concomitant]
  6. NIMETAZEPAM              (NIMETAZEPAM) [Concomitant]
  7. OXATAMIDE            (OXATAMIDE) [Concomitant]

REACTIONS (6)
  - BLOOD CREATINE PHOSPHOKINASE INCREASED [None]
  - CATATONIA [None]
  - CENTRAL NERVOUS SYSTEM LESION [None]
  - DIABETES INSIPIDUS [None]
  - NUCLEAR MAGNETIC RESONANCE IMAGING BRAIN ABNORMAL [None]
  - STUPOR [None]
